FAERS Safety Report 21550748 (Version 2)
Quarter: 2023Q1

REPORT INFORMATION
  Report Type: Spontaneous
  Country: US (occurrence: US)
  Receive Date: 20221103
  Receipt Date: 20230124
  Transmission Date: 20230417
  Serious: No
  Sender: FDA-Public Use
  Company Number: US-002147023-NVSC2022US247637

PATIENT
  Age: 11 Month
  Sex: Male

DRUGS (1)
  1. ZOLGENSMA [Suspect]
     Active Substance: ONASEMNOGENE ABEPARVOVEC-XIOI
     Indication: Spinal muscular atrophy
     Dosage: UNK UNK, ONCE/SINGLE
     Route: 042
     Dates: start: 20220926

REACTIONS (1)
  - Liver function test increased [Not Recovered/Not Resolved]
